FAERS Safety Report 15578362 (Version 1)
Quarter: 2018Q4

REPORT INFORMATION
  Report Type: Report from Study
  Country: None (occurrence: US)
  Receive Date: 20181102
  Receipt Date: 20181102
  Transmission Date: 20190205
  Serious: Yes (Other)
  Sender: FDA-Public Use
  Company Number: US-ABBVIE-18K-163-2539231-00

PATIENT
  Sex: Female

DRUGS (1)
  1. HUMIRA [Suspect]
     Active Substance: ADALIMUMAB
     Indication: ANKYLOSING SPONDYLITIS
     Route: 058

REACTIONS (6)
  - Nasopharyngitis [Not Recovered/Not Resolved]
  - Joint dislocation [Recovered/Resolved]
  - Sinus disorder [Not Recovered/Not Resolved]
  - Vascular rupture [Recovered/Resolved]
  - Road traffic accident [Recovered/Resolved]
  - Back pain [Not Recovered/Not Resolved]
